FAERS Safety Report 9702500 (Version 2)
Quarter: 2013Q4

REPORT INFORMATION
  Report Type: Spontaneous
  Country: VE (occurrence: VE)
  Receive Date: 20131121
  Receipt Date: 20131204
  Transmission Date: 20140711
  Serious: No
  Sender: FDA-Public Use
  Company Number: VE-PFIZER INC-2013332523

PATIENT
  Age: 59 Year
  Sex: Male

DRUGS (3)
  1. LYRICA [Suspect]
     Indication: BACK DISORDER
     Dosage: UNK MG, 1X/DAY
     Route: 048
     Dates: start: 201309, end: 201309
  2. NIFEDIPINE [Concomitant]
     Indication: HYPERTENSION
     Dosage: 10 MG, 1X/DAY
     Route: 048
     Dates: start: 2006
  3. BI-EUGLUCON [Concomitant]
     Indication: DIABETES MELLITUS
     Dosage: UNK
     Route: 048

REACTIONS (1)
  - Somnolence [Recovered/Resolved]
